FAERS Safety Report 9164019 (Version 2)
Quarter: 2013Q2

REPORT INFORMATION
  Report Type: Spontaneous
  Country: US (occurrence: US)
  Receive Date: 20130313
  Receipt Date: 20130429
  Transmission Date: 20140414
  Serious: No
  Sender: FDA-Public Use
  Company Number: US-RB-050941-13

PATIENT
  Age: 54 Year
  Sex: Male

DRUGS (3)
  1. SUBOXONE TABLET [Suspect]
     Indication: PAIN
     Route: 060
     Dates: start: 201008, end: 2012
  2. SUBOXONE TABLET [Suspect]
     Route: 060
     Dates: start: 2012
  3. SUBOXONE FILM [Suspect]
     Indication: PAIN
     Dosage: SUBOXONE FILM
     Route: 060
     Dates: start: 2012, end: 2012

REACTIONS (1)
  - Off label use [Not Recovered/Not Resolved]
